FAERS Safety Report 5601622-2 (Version None)
Quarter: 2008Q1

REPORT INFORMATION
  Report Type: 
  Country: None (occurrence: None)
  Receive Date: 20080124
  Receipt Date: 20070206
  Transmission Date: 20080703
  Serious: No
  Sender: FDA-Public Use
  Company Number: US-BRISTOL-MYERS SQUIBB COMPANY-13670344

PATIENT
  Age: 57 Year
  Sex: Male

DRUGS (2)
  1. AZACTAM [Suspect]
     Indication: INFECTION
  2. VANCOMYCIN [Concomitant]
     Indication: INFECTION

REACTIONS (1)
  - DIPLOPIA [None]
